FAERS Safety Report 23520786 (Version 1)
Quarter: 2024Q1

REPORT INFORMATION
  Report Type: 
  Country: None (occurrence: None)
  Receive Date: 20240214
  Receipt Date: 20240214
  Transmission Date: 20240409
  Serious: No
  Sender: FDA-Public Use
  Company Number: JP-CHUGAI-2023046792

PATIENT

DRUGS (2)
  1. ENSPRYNG [Suspect]
     Active Substance: SATRALIZUMAB-MWGE
     Dates: end: 202311
  2. ENSPRYNG [Suspect]
     Active Substance: SATRALIZUMAB-MWGE
     Dosage: 05/JAN/2024

REACTIONS (2)
  - Food poisoning [None]
  - Enteritis infectious [None]

NARRATIVE: CASE EVENT DATE: 20231222
